FAERS Safety Report 6168312-1 (Version None)
Quarter: 2009Q2

REPORT INFORMATION
  Report Type: 
  Country: None (occurrence: None)
  Receive Date: 20090427
  Receipt Date: 20090415
  Transmission Date: 20091009
  Serious: Yes (Hospitalization, Other)
  Sender: FDA-Public Use
  Company Number: GB-PFIZER INC-2009181522

PATIENT

DRUGS (7)
  1. CELSENTRI [Suspect]
     Indication: HIV INFECTION
     Dosage: 300 MG, 2X/DAY
     Route: 048
     Dates: start: 20081204, end: 20081223
  2. ZIDOVUDINE [Concomitant]
     Indication: HIV INFECTION
     Dosage: 250 MG, 2X/DAY
     Dates: start: 20081204, end: 20081223
  3. TENOFOVIR [Concomitant]
     Dosage: UNK
     Route: 048
     Dates: start: 20080215, end: 20081223
  4. CO-TRIMOXAZOLE [Concomitant]
     Dosage: UNK
     Route: 048
     Dates: end: 20081223
  5. LANSOPRAZOLE [Concomitant]
     Dosage: UNK
     Dates: end: 20081223
  6. METOCLOPRAMIDE [Concomitant]
     Dosage: UNK
     Dates: end: 20081223
  7. LOPERAMIDE [Concomitant]
     Dosage: UNK
     Dates: end: 20081223

REACTIONS (7)
  - ABASIA [None]
  - ADRENAL INSUFFICIENCY [None]
  - BLOOD CREATINE PHOSPHOKINASE INCREASED [None]
  - MUSCULAR WEAKNESS [None]
  - MYOPATHY [None]
  - NAUSEA [None]
  - VOMITING [None]
